FAERS Safety Report 4329031-7 (Version None)
Quarter: 2004Q1

REPORT INFORMATION
  Report Type: 
  Country: None (occurrence: None)
  Receive Date: 20040331
  Receipt Date: 20040331
  Transmission Date: 20041129
  Serious: Yes (Hospitalization)
  Sender: FDA-Public Use
  Company Number: None

PATIENT
  Age: 77 Year
  Sex: Male
  Weight: 113 kg

DRUGS (1)
  1. LINEZOLID 600 MG [Suspect]
     Indication: INFECTION
     Dosage: 600 MG Q12 H IV
     Route: 042
     Dates: start: 20040114, end: 20040117

REACTIONS (1)
  - THROMBOCYTOPENIA [None]
